FAERS Safety Report 13863362 (Version 2)
Quarter: 2017Q3

REPORT INFORMATION
  Report Type: Spontaneous
  Country: US (occurrence: US)
  Receive Date: 20170814
  Receipt Date: 20170818
  Transmission Date: 20171127
  Serious: Yes (Other)
  Sender: FDA-Public Use
  Company Number: US-PFIZER INC-2017344973

PATIENT
  Age: 76 Year
  Sex: Female

DRUGS (7)
  1. PREDNISONE. [Suspect]
     Active Substance: PREDNISONE
     Dosage: 60 MG/M2, UNK (DAYS 1-7)
     Dates: start: 20160920
  2. PREDNISONE. [Suspect]
     Active Substance: PREDNISONE
     Dosage: 20 MG, CYCLIC [QD X 5 DAYS; EVERY 28 DAYS]
     Route: 048
  3. METHOTREXATE SODIUM. [Suspect]
     Active Substance: METHOTREXATE SODIUM
     Dosage: 40 MG, WEEKLY [Q WEEK (EXCEPT WHEN SHE HAS IT)]
     Route: 048
  4. VINCRISTINE SULFATE. [Suspect]
     Active Substance: VINCRISTINE SULFATE
     Dosage: 2 MG, UNK (IVP DAYS 1, 8, 15, 22)
     Route: 042
     Dates: start: 20160920
  5. DAUNORUBICIN [Suspect]
     Active Substance: DAUNORUBICIN
     Dosage: 30 MG/M2, UNK (DAYS 1, 2, 3)
     Dates: start: 20160920
  6. ONCOVIN [Suspect]
     Active Substance: VINCRISTINE SULFATE
     Dosage: UNK
  7. PURINETHOL [Suspect]
     Active Substance: MERCAPTOPURINE
     Dosage: 100 MG, 1X/DAY QHS
     Route: 048

REACTIONS (2)
  - Bone marrow failure [Unknown]
  - Neoplasm progression [Unknown]
